FAERS Safety Report 24863833 (Version 1)
Quarter: 2025Q1

REPORT INFORMATION
  Report Type: Spontaneous
  Country: US (occurrence: US)
  Receive Date: 20250120
  Receipt Date: 20250120
  Transmission Date: 20250408
  Serious: No
  Sender: Phathom Pharmaceuticals
  Company Number: US-PHATHOM PHARMACEUTICALS INC.-2024PHT01117

PATIENT
  Age: 68 Year
  Sex: Female

DRUGS (10)
  1. VOQUEZNA [Suspect]
     Active Substance: VONOPRAZAN FUMARATE
     Indication: Gastrooesophageal reflux disease
     Dosage: 20 MG, 1X/DAY
     Route: 048
     Dates: start: 20240824, end: 20241014
  2. ATORVASTATIN [Concomitant]
     Active Substance: ATORVASTATIN
  3. LATUDA [Concomitant]
     Active Substance: LURASIDONE HYDROCHLORIDE
  4. ESOMEPRAZOLE [Concomitant]
     Active Substance: ESOMEPRAZOLE
  5. HYDROXYCHLOROQUINE [Concomitant]
     Active Substance: HYDROXYCHLOROQUINE
  6. FUROSEMIDE [Concomitant]
     Active Substance: FUROSEMIDE
  7. LISINOPRIL [Concomitant]
     Active Substance: LISINOPRIL
  8. ELIQUIS [Concomitant]
     Active Substance: APIXABAN
  9. TRAZODONE [Concomitant]
     Active Substance: TRAZODONE HYDROCHLORIDE
  10. DULOXETINE [Concomitant]
     Active Substance: DULOXETINE

REACTIONS (1)
  - Gastrooesophageal reflux disease [Unknown]

NARRATIVE: CASE EVENT DATE: 20240824
